FAERS Safety Report 7281829-1 (Version None)
Quarter: 2011Q1

REPORT INFORMATION
  Report Type: 
  Country: None (occurrence: None)
  Receive Date: 20110208
  Receipt Date: 20110202
  Transmission Date: 20110831
  Serious: Yes (Hospitalization)
  Sender: FDA-Public Use
  Company Number: FR-PFIZER INC-2011023937

PATIENT
  Age: 55 Year
  Sex: Male

DRUGS (5)
  1. NIFUROXAZIDE [Suspect]
     Dosage: UNK
     Route: 048
     Dates: start: 20100510, end: 20100510
  2. LEXOMIL [Suspect]
     Dosage: UNK
     Route: 048
     Dates: start: 20100510, end: 20100510
  3. ALCOHOL [Suspect]
     Dosage: BINGE DRINKING
     Route: 048
     Dates: start: 20100501, end: 20100510
  4. EFFEXOR XR [Suspect]
     Dosage: UNK
     Route: 048
     Dates: start: 20100510, end: 20100510
  5. HEXAQUINE [Suspect]
     Dosage: UNK
     Route: 048
     Dates: start: 20100510, end: 20100510

REACTIONS (5)
  - HAEMATEMESIS [None]
  - TOXICITY TO VARIOUS AGENTS [None]
  - PANCREATITIS ACUTE [None]
  - ALCOHOL POISONING [None]
  - DIARRHOEA [None]
